FAERS Safety Report 7399233-4 (Version None)
Quarter: 2011Q2

REPORT INFORMATION
  Report Type: 
  Country: None (occurrence: None)
  Receive Date: 20110407
  Receipt Date: 20110404
  Transmission Date: 20111010
  Serious: Yes (Other)
  Sender: FDA-Public Use
  Company Number: US-PFIZER INC-2009231012

PATIENT
  Sex: Female
  Weight: 61.2 kg

DRUGS (9)
  1. CHANTIX [Suspect]
     Indication: SMOKING CESSATION THERAPY
     Dosage: 0.5 MG, 1X/DAY
     Route: 048
     Dates: start: 20090501
  2. CHANTIX [Suspect]
     Dosage: 0.5 MG, 1X/DAY
     Route: 048
     Dates: start: 20110101, end: 20110101
  3. LEXAPRO [Concomitant]
     Indication: MENOPAUSAL DEPRESSION
     Dosage: UNK
  4. CHANTIX [Suspect]
     Dosage: 0.5 MG, 1X/DAY 5 DAYS
     Route: 048
     Dates: start: 20110201, end: 20110201
  5. NORCO [Concomitant]
     Indication: PAIN
     Dosage: [HYDROCODONE BITARTRATE] 5 MG /[ACETAMINOPHEN] 325 MG; TID-QID
     Dates: start: 20080101
  6. VALTREX [Concomitant]
     Indication: HERPES SIMPLEX
     Dosage: UNK, ONCE DAILY
     Dates: start: 20090101
  7. CHANTIX [Suspect]
     Dosage: 0.5 MG, 1X/DAY
     Route: 048
     Dates: start: 20101229
  8. CHANTIX [Suspect]
     Dosage: 1 MG, 2X/DAY
     Route: 048
     Dates: start: 20110101, end: 20110101
  9. PREMARIN [Concomitant]
     Indication: HORMONE REPLACEMENT THERAPY
     Dosage: UNK, ONCE DAILY
     Dates: start: 20040101

REACTIONS (3)
  - AGITATION [None]
  - PSYCHOTIC DISORDER [None]
  - INSOMNIA [None]
